FAERS Safety Report 6891535-0 (Version None)
Quarter: 2010Q3

REPORT INFORMATION
  Report Type: 
  Country: None (occurrence: None)
  Receive Date: 20100731
  Receipt Date: 20071201
  Transmission Date: 20110219
  Serious: No
  Sender: FDA-Public Use
  Company Number: US-PFIZER INC-2005172650

PATIENT
  Age: 56 Year
  Sex: Female

DRUGS (2)
  1. DEPO-MEDROL [Suspect]
     Indication: EPICONDYLITIS
     Dates: start: 20051101
  2. MARCAINE [Concomitant]

REACTIONS (2)
  - SCAR [None]
  - SKIN DISORDER [None]
